FAERS Safety Report 15191667 (Version 1)
Quarter: 2018Q3

REPORT INFORMATION
  Report Type: Spontaneous
  Country: FR (occurrence: FR)
  Receive Date: 20180724
  Receipt Date: 20180724
  Transmission Date: 20181010
  Serious: Yes (Death, Other)
  Sender: FDA-Public Use
  Company Number: FR-MYLANLABS-2018M1053764

PATIENT
  Age: 14 Year
  Sex: Male

DRUGS (1)
  1. IMATINIB [Suspect]
     Active Substance: IMATINIB
     Indication: BLAST CRISIS IN MYELOGENOUS LEUKAEMIA
     Dosage: 340 MG/M2 (260?340 MG/M2), QD
     Route: 048

REACTIONS (3)
  - Blast crisis in myelogenous leukaemia [Fatal]
  - Malignant neoplasm progression [Fatal]
  - Drug ineffective [Unknown]
